FAERS Safety Report 9447837 (Version 1)
Quarter: 2013Q3

REPORT INFORMATION
  Report Type: Spontaneous
  Country: JP (occurrence: JP)
  Receive Date: 20130808
  Receipt Date: 20130808
  Transmission Date: 20140515
  Serious: Yes (Death, Life-Threatening, Other)
  Sender: FDA-Public Use
  Company Number: JP-ELI_LILLY_AND_COMPANY-JP201301006393

PATIENT
  Age: 22 Year
  Sex: Female

DRUGS (4)
  1. CYMBALTA [Suspect]
     Indication: DEPRESSION
     Dosage: UNK
     Route: 048
  2. CYMBALTA [Suspect]
     Dosage: 1120 MG, SINGLE
     Route: 048
     Dates: start: 20130117, end: 20130117
  3. SODIUM VALPROATE [Concomitant]
     Dosage: 9000 MG, SINGLE
     Route: 048
     Dates: start: 20130117, end: 20130117
  4. BROTIZOLAM [Concomitant]
     Dosage: 2.6 MG, SINGLE
     Route: 048
     Dates: start: 20130117, end: 20130117

REACTIONS (6)
  - Multi-organ failure [Fatal]
  - Serotonin syndrome [Unknown]
  - Stress cardiomyopathy [Recovering/Resolving]
  - Ventricular fibrillation [Unknown]
  - Suicide attempt [Recovered/Resolved]
  - Intentional overdose [Recovered/Resolved]
